FAERS Safety Report 20562317 (Version 1)
Quarter: 2022Q1

REPORT INFORMATION
  Report Type: Spontaneous
  Country: US (occurrence: US)
  Receive Date: 20220307
  Receipt Date: 20220307
  Transmission Date: 20220423
  Serious: No
  Sender: FDA-Public Use
  Company Number: US-PFIZER INC-2021895250

PATIENT
  Age: 68 Year
  Sex: Female

DRUGS (1)
  1. XELJANZ [Suspect]
     Active Substance: TOFACITINIB CITRATE
     Dosage: 5 MG (TAKE ONE XELJANZ FOR THREE WEEKS AND THEN MOVE UP TO THE TWO TIMES A DAY AFTER THAT)

REACTIONS (3)
  - Abdominal pain upper [Unknown]
  - Hyperhidrosis [Unknown]
  - Malaise [Unknown]
